FAERS Safety Report 9682224 (Version 2)
Quarter: 2014Q2

REPORT INFORMATION
  Report Type: Report from Study
  Country: CA (occurrence: CA)
  Receive Date: 20131112
  Receipt Date: 20140626
  Transmission Date: 20141212
  Serious: Yes (Other)
  Sender: FDA-Public Use
  Company Number: CA-ROCHE-1301205

PATIENT
  Sex: Female
  Weight: 52.6 kg

DRUGS (12)
  1. RITUXAN [Suspect]
     Indication: PRODUCT USED FOR UNKNOWN INDICATION
     Route: 065
     Dates: end: 201306
  2. PREDNISONE [Suspect]
     Indication: PRODUCT USED FOR UNKNOWN INDICATION
     Route: 065
  3. ACTEMRA [Suspect]
     Indication: RHEUMATOID ARTHRITIS
     Route: 042
     Dates: start: 20131224
  4. ACTEMRA [Suspect]
     Route: 042
     Dates: end: 20140527
  5. LANSOPRAZOLE [Concomitant]
  6. PLAQUENIL [Concomitant]
  7. TYLENOL [Concomitant]
  8. HYDROMORPHONE [Concomitant]
  9. LYRICA [Concomitant]
  10. CORTISONE [Concomitant]
     Route: 065
  11. METHOTREXATE [Concomitant]
  12. FOLIC ACID [Concomitant]

REACTIONS (4)
  - Arthropathy [Unknown]
  - Influenza [Recovered/Resolved]
  - Drug ineffective [Unknown]
  - Depression [Not Recovered/Not Resolved]
